FAERS Safety Report 15291743 (Version 1)
Quarter: 2018Q3

REPORT INFORMATION
  Report Type: Spontaneous
  Country: JP (occurrence: JP)
  Receive Date: 20180817
  Receipt Date: 20180817
  Transmission Date: 20181010
  Serious: Yes (Death)
  Sender: FDA-Public Use
  Company Number: JP-BAUSCH-BL-2018-022531

PATIENT
  Age: 76 Year
  Sex: Male

DRUGS (1)
  1. TARGRETIN [Suspect]
     Active Substance: BEXAROTENE
     Indication: MYCOSIS FUNGOIDES
     Route: 048
     Dates: start: 20180622

REACTIONS (1)
  - Death [Fatal]

NARRATIVE: CASE EVENT DATE: 20180809
